FAERS Safety Report 5022311-1 (Version None)
Quarter: 2006Q2

REPORT INFORMATION
  Report Type: 
  Country: None (occurrence: None)
  Receive Date: 20060609
  Receipt Date: 20060512
  Transmission Date: 20061013
  Serious: Yes (Other)
  Sender: FDA-Public Use
  Company Number: PHBS2006JP07271

PATIENT
  Age: 54 Year
  Sex: Female

DRUGS (6)
  1. LOXONIN [Concomitant]
     Indication: SPONDYLOLISTHESIS
     Dosage: 3 DF, UNK
     Route: 048
     Dates: end: 20060101
  2. CYANOCOBALAMIN [Concomitant]
     Indication: SPONDYLOLISTHESIS
     Dosage: 250 MG/DAY
     Route: 048
     Dates: start: 20050201
  3. OPALMON [Concomitant]
     Indication: SPONDYLOLISTHESIS
     Dosage: 15 DF/DAY
     Route: 048
     Dates: start: 20050201
  4. NEUROTROPIN [Concomitant]
     Indication: SPONDYLOLISTHESIS
     Dosage: 4 DF/DAY
     Route: 048
     Dates: start: 20050201
  5. SELBEX [Concomitant]
     Indication: SPONDYLOLISTHESIS
     Dosage: 450 MG/DAY
     Route: 048
     Dates: start: 20050401
  6. VOLTAREN [Suspect]
     Indication: SPONDYLOLISTHESIS
     Dosage: 25 MG, PRN
     Route: 054
     Dates: start: 20050406, end: 20060101

REACTIONS (9)
  - ARTHRALGIA [None]
  - ASTHENIA [None]
  - BACK PAIN [None]
  - BLOOD CREATINE PHOSPHOKINASE INCREASED [None]
  - ERYTHEMA [None]
  - HYPOTHYROIDISM [None]
  - MYOGLOBIN BLOOD PRESENT [None]
  - PAIN [None]
  - POLYMYOSITIS [None]
